FAERS Safety Report 15316303 (Version 1)
Quarter: 2018Q3

REPORT INFORMATION
  Report Type: Spontaneous
  Country: US (occurrence: US)
  Receive Date: 20180816
  Receipt Date: 20180816
  Transmission Date: 20181010
  Serious: Yes (Disabling)
  Sender: FDA-Public Use
  Company Number: None

PATIENT
  Age: 71 Year
  Sex: Female
  Weight: 90 kg

DRUGS (7)
  1. TYLENOL [Concomitant]
     Active Substance: ACETAMINOPHEN
  2. CIPROFLOXACIN. [Suspect]
     Active Substance: CIPROFLOXACIN
     Indication: URINARY TRACT INFECTION
     Dosage: ?          QUANTITY:1 DF DOSAGE FORM;?
     Route: 048
     Dates: start: 20180630, end: 20180701
  3. METHOTREXATE. [Concomitant]
     Active Substance: METHOTREXATE
  4. FOLIC ACID. [Concomitant]
     Active Substance: FOLIC ACID
  5. LEVOFLOXACIN. [Suspect]
     Active Substance: LEVOFLOXACIN
     Indication: URINARY TRACT INFECTION
     Dosage: ?          QUANTITY:1 DF DOSAGE FORM;?
     Route: 048
     Dates: start: 20180718, end: 20180725
  6. SIMVISTATIN [Concomitant]
     Active Substance: SIMVASTATIN
  7. NAPROXEN. [Concomitant]
     Active Substance: NAPROXEN

REACTIONS (7)
  - Musculoskeletal disorder [None]
  - Musculoskeletal pain [None]
  - Muscular weakness [None]
  - Dysstasia [None]
  - Pain in extremity [None]
  - Muscle rupture [None]
  - Arthralgia [None]

NARRATIVE: CASE EVENT DATE: 20180801
